FAERS Safety Report 4813176-9 (Version None)
Quarter: 2005Q4

REPORT INFORMATION
  Report Type: 
  Country: None (occurrence: None)
  Receive Date: 20051026
  Receipt Date: 20051012
  Transmission Date: 20060501
  Serious: Yes (Hospitalization)
  Sender: FDA-Public Use
  Company Number: 2005EU002351

PATIENT
  Age: 49 Year
  Sex: Male

DRUGS (5)
  1. PROGRAF [Suspect]
     Indication: LIVER TRANSPLANT
     Dosage: SEE IMAGE
     Route: 048
     Dates: start: 19980915
  2. NORVASC [Concomitant]
  3. EPIVIR [Concomitant]
  4. ATENOLOL [Concomitant]
  5. LOSEC /SWE/ (OMEPRAZOLE) [Concomitant]

REACTIONS (3)
  - HYPERTENSION [None]
  - MESENTERIC VEIN THROMBOSIS [None]
  - TREMOR [None]
